FAERS Safety Report 14656998 (Version 1)
Quarter: 2018Q1

REPORT INFORMATION
  Report Type: Spontaneous
  Country: US (occurrence: US)
  Receive Date: 20180319
  Receipt Date: 20180319
  Transmission Date: 20180509
  Serious: Yes (Other)
  Sender: FDA-Public Use
  Company Number: US-SA-2017SA269041

PATIENT
  Age: 49 Year
  Sex: Female

DRUGS (2)
  1. STRIBILD [Interacting]
     Active Substance: COBICISTAT\ELVITEGRAVIR\EMTRICITABINE\TENOFOVIR DISOPROXIL FUMARATE
     Indication: HIV INFECTION
     Dosage: ELVITEGRAVIR 150 MG/COBICISTAT 150 MG/TENOFOVIR DISOPROXIL FUMARATE 300 MG/EMTRICITABINE 200 MG
     Route: 048
  2. TRIAMCINOLONE ACETONIDE. [Suspect]
     Active Substance: TRIAMCINOLONE ACETONIDE
     Dosage: INTERLAMINAR EPIDURAL SPINAL INJECTION OF TRIAMCINOLONE ACETONIDE 80 MG

REACTIONS (6)
  - Weight increased [Recovered/Resolved]
  - Pain [Recovered/Resolved]
  - Cushingoid [Recovered/Resolved]
  - Fatigue [Recovered/Resolved]
  - Drug interaction [Unknown]
  - Adrenal insufficiency [Recovered/Resolved]
